FAERS Safety Report 4491885-1 (Version None)
Quarter: 2004Q4

REPORT INFORMATION
  Report Type: 
  Country: None (occurrence: None)
  Receive Date: 20041101
  Receipt Date: 20041015
  Transmission Date: 20050328
  Serious: Yes (Hospitalization)
  Sender: FDA-Public Use
  Company Number: 206427

PATIENT
  Age: 65 Year
  Sex: Female

DRUGS (4)
  1. AVONEX [Suspect]
     Indication: MULTIPLE SCLEROSIS
     Dates: start: 19960101
  2. AVONEX [Suspect]
     Indication: MULTIPLE SCLEROSIS
  3. BETASERON [Concomitant]
  4. COPAXONE [Concomitant]

REACTIONS (3)
  - DRUG INTOLERANCE [None]
  - INJECTION SITE INFECTION [None]
  - INTERVERTEBRAL DISC PROTRUSION [None]
